FAERS Safety Report 10597162 (Version 1)
Quarter: 2014Q4

REPORT INFORMATION
  Report Type: Spontaneous
  Country: DE (occurrence: DE)
  Receive Date: 20141121
  Receipt Date: 20141121
  Transmission Date: 20150529
  Serious: Yes (Hospitalization)
  Sender: FDA-Public Use
  Company Number: GXKR2014DE004258

PATIENT

DRUGS (7)
  1. ERGENYL                            /01294701/ [Interacting]
     Active Substance: VALPROIC ACID
     Dosage: 1200 MG, UNK
     Route: 048
     Dates: start: 20140426, end: 20140506
  2. ZYPREXA [Interacting]
     Active Substance: OLANZAPINE
     Dosage: 20 MG, UNK
     Route: 048
  3. PANTOZOL [Concomitant]
     Active Substance: PANTOPRAZOLE SODIUM
     Dosage: 40 MG, UNK
     Route: 048
  4. MIRTAZAPINE. [Interacting]
     Active Substance: MIRTAZAPINE
     Dosage: 15 MG, UNK
     Route: 048
     Dates: start: 20140402
  5. METOPROLOL [Interacting]
     Active Substance: METOPROLOL
     Dosage: 50 MG, UNK
     Route: 048
  6. PROMETHAZINE [Suspect]
     Active Substance: PROMETHAZINE\PROMETHAZINE HYDROCHLORIDE
     Dosage: 100 MG, UNK
     Route: 048
     Dates: start: 20140422
  7. DICLOFENAC [Interacting]
     Active Substance: DICLOFENAC
     Dosage: 150 MG, UNK
     Route: 048
     Dates: start: 201403

REACTIONS (1)
  - Delirium [Recovered/Resolved]

NARRATIVE: CASE EVENT DATE: 20140506
